FAERS Safety Report 4571932-9 (Version None)
Quarter: 2005Q1

REPORT INFORMATION
  Report Type: 
  Country: None (occurrence: None)
  Receive Date: 20050207
  Receipt Date: 20050125
  Transmission Date: 20050727
  Serious: Yes (Other)
  Sender: FDA-Public Use
  Company Number: PHBS2005FI01356

PATIENT
  Age: 27 Year
  Sex: Female

DRUGS (7)
  1. ELIDEL [Suspect]
     Indication: DERMATITIS ATOPIC
     Dosage: UNK, UNK
     Route: 061
     Dates: start: 20041025
  2. LOCOID [Concomitant]
  3. PEVISONE [Concomitant]
  4. ULTRACORTENOL [Concomitant]
  5. XYZAL [Concomitant]
     Dosage: 5 MG, QD
  6. AQUALAN L [Concomitant]
  7. HYDROLAN [Concomitant]

REACTIONS (9)
  - ANTI-THYROID ANTIBODY POSITIVE [None]
  - BLOOD THYROID STIMULATING HORMONE INCREASED [None]
  - DIZZINESS [None]
  - HYPOTHYROIDISM [None]
  - MIGRAINE [None]
  - SYNCOPE [None]
  - THYROIDITIS [None]
  - THYROXINE ABNORMAL [None]
  - VISUAL DISTURBANCE [None]
